FAERS Safety Report 22126894 (Version 1)
Quarter: 2023Q1

REPORT INFORMATION
  Report Type: Spontaneous
  Country: US (occurrence: US)
  Receive Date: 20230322
  Receipt Date: 20230322
  Transmission Date: 20230418
  Serious: No
  Sender: FDA-Public Use
  Company Number: US-TARO PHARMACEUTICALS USA INC.-2022TAR01387

PATIENT
  Sex: Female

DRUGS (2)
  1. LAMOTRIGINE [Suspect]
     Active Substance: LAMOTRIGINE
     Indication: Mood swings
     Dosage: 50 MG, BID
     Route: 048
     Dates: start: 2020
  2. LAMOTRIGINE [Suspect]
     Active Substance: LAMOTRIGINE
     Dosage: 25 MG, BID
     Route: 048
     Dates: start: 2020

REACTIONS (1)
  - Contusion [Recovering/Resolving]

NARRATIVE: CASE EVENT DATE: 20220101
